FAERS Safety Report 7734604 (Version 4)
Quarter: 2014Q2

REPORT INFORMATION
  Report Type: Spontaneous
  Country: US (occurrence: US)
  Receive Date: 20101223
  Receipt Date: 20140529
  Transmission Date: 20141212
  Serious: Yes (Hospitalization, Other)
  Sender: FDA-Public Use
  Company Number: US-BAYER-2010-003369

PATIENT
  Age: 18 Year
  Sex: Female
  Weight: 81.36 kg

DRUGS (14)
  1. YASMIN [Suspect]
     Indication: ORAL CONTRACEPTION
     Dosage: UNK
     Dates: start: 200507, end: 20050829
  2. IMITREX [Concomitant]
     Indication: HEADACHE
     Dosage: UNK
     Dates: start: 200509
  3. IMITREX [Concomitant]
     Indication: HEADACHE
     Dosage: UNK
     Dates: start: 200508
  4. TYLENOL WITH CODEINE [Concomitant]
     Dosage: UNK
     Dates: start: 200509
  5. MOTRIN [Concomitant]
  6. ACETAMINOPHEN W/CODEINE [Concomitant]
  7. TYLENOL WITH CODEINE [Concomitant]
     Indication: HEADACHE
     Dosage: UNK UNK, PRN
     Route: 048
     Dates: start: 200508
  8. MENINGOCOCCAL VACCINES [Concomitant]
     Dosage: UNK
     Dates: start: 200507, end: 200507
  9. REGLAN [Concomitant]
  10. CENTANY [Concomitant]
     Dosage: 2 %, UNK
     Route: 061
     Dates: start: 20050802
  11. AMOXICILLIN [Concomitant]
     Dosage: 500 MG, UNK
     Route: 048
     Dates: start: 20050816
  12. MAGNESIUM OXIDE [Concomitant]
  13. COLACE [Concomitant]
  14. IRON [IRON] [Concomitant]

REACTIONS (7)
  - Thrombotic thrombocytopenic purpura [None]
  - Migraine [None]
  - Jaundice [None]
  - Dysarthria [None]
  - Amnesia [None]
  - Pain [None]
  - Injury [None]
